FAERS Safety Report 9818059 (Version 2)
Quarter: 2013Q4

REPORT INFORMATION
  Report Type: Spontaneous
  Country: US (occurrence: None)
  Receive Date: 20131223
  Receipt Date: 20131223
  Transmission Date: 20140711
  Serious: No
  Sender: FDA-Public Use
  Company Number: 220101

PATIENT
  Age: 60 Year
  Sex: Female

DRUGS (4)
  1. PICATO GEL [Suspect]
     Indication: ACTINIC KERATOSIS
     Dosage: 1 IN 1 D TOPICAL
     Route: 061
     Dates: start: 20130108, end: 20130110
  2. PANTOPRAZOLE (PANTOPRAZOLE) [Concomitant]
  3. LOSARTAN HCTZ HYZAAR [Concomitant]
  4. CELEBREX (CELECOXIB) [Concomitant]

REACTIONS (6)
  - Application site erythema [None]
  - Rash [None]
  - Application site pain [None]
  - Application site pruritus [None]
  - Incorrect dose administered [None]
  - Drug administered at inappropriate site [None]
